FAERS Safety Report 21510499 (Version 1)
Quarter: 2022Q4

REPORT INFORMATION
  Report Type: Spontaneous
  Country: FR (occurrence: FR)
  Receive Date: 20221026
  Receipt Date: 20221026
  Transmission Date: 20230113
  Serious: No
  Sender: FDA-Public Use
  Company Number: FR-JAZZ-2022-FR-032314

PATIENT
  Age: 35 Year
  Sex: Female

DRUGS (2)
  1. XYREM [Suspect]
     Active Substance: SODIUM OXYBATE
     Indication: Product used for unknown indication
     Dosage: UNK
     Dates: start: 20220927
  2. ALCOHOL [Suspect]
     Active Substance: ALCOHOL
     Indication: Product used for unknown indication

REACTIONS (2)
  - Contraindicated product administered [Unknown]
  - Product dose omission issue [Unknown]

NARRATIVE: CASE EVENT DATE: 20220928
